FAERS Safety Report 24752447 (Version 1)
Quarter: 2024Q4

REPORT INFORMATION
  Report Type: Spontaneous
  Country: DE (occurrence: DE)
  Receive Date: 20241219
  Receipt Date: 20241219
  Transmission Date: 20250115
  Serious: Yes (Other)
  Sender: BIOCON
  Company Number: DE-DCGMA-24204397

PATIENT
  Sex: Female
  Weight: 70 kg

DRUGS (1)
  1. ROSUVASTATIN [Suspect]
     Active Substance: ROSUVASTATIN
     Indication: Product used for unknown indication
     Route: 048

REACTIONS (2)
  - Mouth haemorrhage [Recovered/Resolved]
  - Myalgia [Recovered/Resolved]
